FAERS Safety Report 9155618 (Version 1)
Quarter: 2013Q1

REPORT INFORMATION
  Report Type: Spontaneous
  Country: MX (occurrence: MX)
  Receive Date: 20130311
  Receipt Date: 20130311
  Transmission Date: 20140127
  Serious: Yes (Disabling)
  Sender: FDA-Public Use
  Company Number: PHHY2013MX023302

PATIENT
  Age: 74 Year
  Sex: Female

DRUGS (4)
  1. DIOVAN [Suspect]
     Indication: HYPERTENSION
     Dosage: 1 OR 2 DF DEPENDING ON THE BP DAILY
     Route: 048
  2. INSULIN [Concomitant]
     Dosage: UNK UKN, UNK
  3. SPIRONOLACTONE [Concomitant]
     Dosage: UNK UKN, UNK
  4. ASPIRIN PROTEC [Concomitant]
     Dosage: UNK UKN, UNK

REACTIONS (2)
  - Femur fracture [Not Recovered/Not Resolved]
  - Accident [Unknown]
